FAERS Safety Report 4661354-4 (Version None)
Quarter: 2005Q2

REPORT INFORMATION
  Report Type: 
  Country: None (occurrence: None)
  Receive Date: 20050512
  Receipt Date: 20050505
  Transmission Date: 20051028
  Serious: Yes (Congenital Anomaly)
  Sender: FDA-Public Use
  Company Number: 05-05-0766

PATIENT
  Sex: Female

DRUGS (2)
  1. FLUOXETINE USP - IPI  UNKNOWN [Suspect]
     Indication: BULIMIA NERVOSA
     Dosage: 20-60MG ORAL
     Route: 048
  2. FLUOXETINE USP - IPI  UNKNOWN [Suspect]
     Indication: DEPRESSION
     Dosage: 20-60MG ORAL
     Route: 048

REACTIONS (2)
  - CONGENITAL CYSTIC LUNG [None]
  - DRUG EXPOSURE DURING PREGNANCY [None]
